FAERS Safety Report 8682368 (Version 2)
Quarter: 2013Q1

REPORT INFORMATION
  Report Type: Spontaneous
  Country: DE (occurrence: DE)
  Receive Date: 20120725
  Receipt Date: 20130131
  Transmission Date: 20140127
  Serious: Yes (Other)
  Sender: FDA-Public Use
  Company Number: DE-BRISTOL-MYERS SQUIBB COMPANY-16772147

PATIENT
  Age: 67 Year
  Sex: Male

DRUGS (1)
  1. REYATAZ CAPS 300 MG [Suspect]
     Indication: HIV INFECTION
     Dosage: FOR SEVERAL YEARS ?ROUTE-PEG TUBE

REACTIONS (1)
  - Dysphagia [Unknown]
